FAERS Safety Report 10518958 (Version 1)
Quarter: 2014Q4

REPORT INFORMATION
  Report Type: Spontaneous
  Country: FR (occurrence: FR)
  Receive Date: 20141015
  Receipt Date: 20141015
  Transmission Date: 20150528
  Serious: Yes (Hospitalization)
  Sender: FDA-Public Use
  Company Number: PHHY2014FR133412

PATIENT
  Age: 27 Year
  Sex: Female

DRUGS (3)
  1. BETAMETHASONE [Suspect]
     Active Substance: BETAMETHASONE
     Indication: MATERNAL THERAPY TO ENHANCE FOETAL LUNG MATURITY
     Dosage: 12 MG, QD
     Route: 042
  2. NICARDIPINE [Suspect]
     Active Substance: NICARDIPINE
     Indication: PREMATURE LABOUR
     Dosage: 2 MG/H, UNK
     Route: 042
  3. GLUCOSE, LIQUID\POTASSIUM CHLORIDE\SODIUM CHLORIDE [Suspect]
     Active Substance: GLUCOSE, LIQUID\POTASSIUM CHLORIDE\SODIUM CHLORIDE
     Indication: PREMATURE LABOUR
     Route: 041

REACTIONS (9)
  - Dyspnoea [Recovered/Resolved]
  - Hypoxia [Recovered/Resolved]
  - Orthopnoea [Recovered/Resolved]
  - Heart rate increased [Recovered/Resolved]
  - Maternal exposure during pregnancy [Unknown]
  - Cough [Recovered/Resolved]
  - Pulmonary oedema [Recovered/Resolved]
  - Blood pressure decreased [Recovered/Resolved]
  - Sinus tachycardia [Recovered/Resolved]
